FAERS Safety Report 24348952 (Version 1)
Quarter: 2024Q3

REPORT INFORMATION
  Report Type: Spontaneous
  Country: HR (occurrence: HR)
  Receive Date: 20240923
  Receipt Date: 20240923
  Transmission Date: 20241017
  Serious: Yes (Other)
  Sender: TEVA
  Company Number: None

PATIENT
  Age: 33 Year
  Sex: Female

DRUGS (1)
  1. COPAXONE [Suspect]
     Active Substance: GLATIRAMER ACETATE
     Indication: Multiple sclerosis
     Route: 058
     Dates: start: 202011, end: 202408

REACTIONS (2)
  - Choking [Recovered/Resolved]
  - Application site atrophy [Recovered/Resolved with Sequelae]

NARRATIVE: CASE EVENT DATE: 20240101
